FAERS Safety Report 7351323-8 (Version None)
Quarter: 2011Q1

REPORT INFORMATION
  Report Type: 
  Country: None (occurrence: None)
  Receive Date: 20110314
  Receipt Date: 20110228
  Transmission Date: 20110831
  Serious: Yes (Other)
  Sender: FDA-Public Use
  Company Number: PHHY2010DE87506

PATIENT
  Sex: Male

DRUGS (11)
  1. DELIX [Concomitant]
     Dosage: 2.5 MG, DAILY
     Route: 048
     Dates: start: 20070101
  2. ASPIRIN [Concomitant]
     Dosage: 100 MG, DAYS
     Route: 048
     Dates: start: 20070101
  3. MST [Concomitant]
     Dosage: 10 MG, DAILY
     Route: 048
     Dates: start: 20070101
  4. HYDROCORTISONE [Concomitant]
     Dosage: 5 MG, DAILY
     Route: 048
     Dates: start: 20080101
  5. AFINITOR [Suspect]
     Indication: RENAL CELL CARCINOMA
     Dosage: 10 MG,DAILY
     Route: 048
     Dates: start: 20101111, end: 20101223
  6. PRAVASTATIN [Concomitant]
     Dosage: 20 MG, DAILY
     Route: 048
     Dates: start: 20070101
  7. ASTONIN-H [Concomitant]
     Dosage: 0.1 MG, DAILY
     Route: 048
     Dates: start: 20080101
  8. AMLODIPINE [Concomitant]
     Dosage: 5 MG, DAILY
     Route: 048
     Dates: start: 20070101
  9. BISOPROLOL FUMARATE [Concomitant]
     Dosage: 5 MG, DAILY
     Route: 048
     Dates: start: 20070101
  10. AMARYL [Concomitant]
     Dosage: 1 MG, DAILY
     Route: 048
     Dates: start: 20070101
  11. TRIAMTERENE AND HYDROCHLOROTHIAZIDE [Concomitant]
     Dosage: 10 MG, DAILY
     Route: 048
     Dates: start: 20070101

REACTIONS (1)
  - CEREBRAL ISCHAEMIA [None]
